FAERS Safety Report 4728119-6 (Version None)
Quarter: 2005Q3

REPORT INFORMATION
  Report Type: 
  Country: None (occurrence: None)
  Receive Date: 20050728
  Receipt Date: 20050728
  Transmission Date: 20060218
  Serious: Yes (Other)
  Sender: FDA-Public Use
  Company Number: None

PATIENT
  Sex: Female
  Weight: 68.0396 kg

DRUGS (1)
  1. MIRAPEX [Suspect]
     Indication: PARKINSON'S DISEASE
     Dosage: 1 TABLET 3 TIMES A DAY
     Dates: start: 20000305, end: 20010430

REACTIONS (7)
  - ABNORMAL BEHAVIOUR [None]
  - INSOMNIA [None]
  - LIBIDO DISORDER [None]
  - OBSESSIVE-COMPULSIVE DISORDER [None]
  - PARANOIA [None]
  - THINKING ABNORMAL [None]
  - WEIGHT DECREASED [None]
